FAERS Safety Report 10234720 (Version 3)
Quarter: 2014Q3

REPORT INFORMATION
  Report Type: Spontaneous
  Country: CH (occurrence: CH)
  Receive Date: 20140613
  Receipt Date: 20140714
  Transmission Date: 20150326
  Serious: Yes (Hospitalization, Other)
  Sender: FDA-Public Use
  Company Number: CH-AMGEN-CHESP2014043895

PATIENT
  Age: 40 Year
  Sex: Female

DRUGS (6)
  1. ENBREL [Suspect]
     Active Substance: ETANERCEPT
     Indication: PSORIASIS
     Dosage: 50 MG, WEEKLY
     Route: 058
     Dates: start: 20140514, end: 20140521
  2. SPIRICORT [Concomitant]
     Active Substance: PREDNISOLONE
     Dosage: 100 MG, UNK
  3. ENBREL [Suspect]
     Active Substance: ETANERCEPT
     Dosage: UNK
     Route: 065
  4. SIRDALUD [Concomitant]
     Active Substance: TIZANIDINE
     Dosage: UNK
  5. ENBREL [Suspect]
     Active Substance: ETANERCEPT
     Dosage: UNK
     Route: 065
  6. LYRICA [Concomitant]
     Active Substance: PREGABALIN
     Dosage: UNK

REACTIONS (5)
  - Diplegia [Recovering/Resolving]
  - Radiculitis [Unknown]
  - Injection site haematoma [Unknown]
  - Neuritis [Unknown]
  - Injection site irritation [Unknown]

NARRATIVE: CASE EVENT DATE: 20140525
